FAERS Safety Report 23155390 (Version 2)
Quarter: 2025Q3

REPORT INFORMATION
  Report Type: Report from Study
  Country: US (occurrence: US)
  Receive Date: 20231107
  Receipt Date: 20250818
  Transmission Date: 20251020
  Serious: No
  Sender: SANOFI AVENTIS
  Company Number: US-SA-SAC20231030001512

PATIENT
  Age: 58 Year
  Sex: Female
  Weight: 58.05 kg

DRUGS (2)
  1. DUPILUMAB [Suspect]
     Active Substance: DUPILUMAB
     Indication: Nasal polyps
     Dosage: 300 MG, QOW
     Route: 058
     Dates: start: 20220629
  2. RIZATRIPTAN [Concomitant]
     Active Substance: RIZATRIPTAN

REACTIONS (3)
  - Nasal polyps [Recovered/Resolved]
  - Condition aggravated [Recovered/Resolved]
  - Hypersensitivity [Unknown]

NARRATIVE: CASE EVENT DATE: 20231001
